FAERS Safety Report 21591101 (Version 1)
Quarter: 2022Q4

REPORT INFORMATION
  Report Type: Spontaneous
  Country: US (occurrence: None)
  Receive Date: 20221111
  Receipt Date: 20221111
  Transmission Date: 20230112
  Serious: No
  Sender: FDA-Public Use
  Company Number: None

PATIENT
  Age: 80 Year
  Sex: Male
  Weight: 112 kg

DRUGS (1)
  1. VISIPAQUE [Suspect]
     Active Substance: IODIXANOL
     Indication: Catheter placement
     Dates: start: 20221107, end: 20221107

REACTIONS (6)
  - Aggression [None]
  - Histrionic personality disorder [None]
  - Coronary artery dissection [None]
  - Urticaria [None]
  - Anaphylactic reaction [None]
  - Tryptase increased [None]

NARRATIVE: CASE EVENT DATE: 20221107
